FAERS Safety Report 9852303 (Version 6)
Quarter: 2015Q2

REPORT INFORMATION
  Report Type: Spontaneous
  Country: TW (occurrence: TW)
  Receive Date: 20140129
  Receipt Date: 20150508
  Transmission Date: 20150821
  Serious: Yes (Hospitalization, Disabling)
  Sender: FDA-Public Use
  Company Number: TW-NOVOPROD-398507

PATIENT
  Age: 72 Year
  Sex: Male
  Weight: 84.6 kg

DRUGS (8)
  1. ASPIRIN. [Concomitant]
     Active Substance: ASPIRIN
     Dosage: 200.0,MG,
     Dates: start: 20140116, end: 20140116
  2. GLUCOBAY [Suspect]
     Active Substance: ACARBOSE
     Indication: TYPE 2 DIABETES MELLITUS
     Dosage: 150 MG, QD
     Dates: start: 20111012
  3. ASPIRIN. [Concomitant]
     Active Substance: ASPIRIN
     Indication: PROPHYLAXIS
     Dosage: 100.0,MG,
     Dates: start: 20140117
  4. NOVONORM [Suspect]
     Active Substance: REPAGLINIDE
     Indication: TYPE 2 DIABETES MELLITUS
     Dosage: 6 MG, QD
     Dates: start: 20120914, end: 20140213
  5. NOVOMIX 30 [Suspect]
     Active Substance: INSULIN ASPART
     Dosage: 60 IU, QD
     Dates: start: 20140124, end: 20141207
  6. EXFORGE [Concomitant]
     Active Substance: AMLODIPINE BESYLATE\VALSARTAN
     Dosage: ONCE DAILY
  7. NOVOMIX 30 [Suspect]
     Active Substance: INSULIN ASPART
     Indication: TYPE 2 DIABETES MELLITUS
     Dosage: 24 IU, QD
     Dates: start: 20131111, end: 20140123
  8. LASIX [Concomitant]
     Active Substance: FUROSEMIDE
     Dosage: ONCE DAILY

REACTIONS (3)
  - Diabetes mellitus inadequate control [Recovered/Resolved]
  - Pneumonia aspiration [Recovered/Resolved]
  - Cerebrovascular accident [Recovering/Resolving]

NARRATIVE: CASE EVENT DATE: 20140114
